FAERS Safety Report 7393758-3 (Version None)
Quarter: 2011Q2

REPORT INFORMATION
  Report Type: 
  Country: None (occurrence: None)
  Receive Date: 20110405
  Receipt Date: 20110325
  Transmission Date: 20111010
  Serious: Yes (Hospitalization)
  Sender: FDA-Public Use
  Company Number: FR-ASTELLAS-2011US000550

PATIENT
  Sex: Male

DRUGS (14)
  1. ENDOXAN [Concomitant]
     Dosage: 550 MG, 1-2/DAY
     Route: 042
     Dates: start: 20100823, end: 20100826
  2. CERUBIDINE [Concomitant]
     Indication: ACUTE LYMPHOCYTIC LEUKAEMIA
     Dosage: 92 MG, UID/QD
     Route: 042
     Dates: start: 20100809, end: 20100811
  3. CERUBIDINE [Concomitant]
     Dosage: 55.2 MG, UID/QD
     Route: 042
     Dates: start: 20100823, end: 20100824
  4. KIDROLASE [Suspect]
     Indication: ACUTE LYMPHOCYTIC LEUKAEMIA
     Dosage: UNK
     Route: 042
     Dates: start: 20100809
  5. METHOTREXATE [Concomitant]
     Indication: ACUTE LYMPHOCYTIC LEUKAEMIA
     Dosage: UNK
     Route: 037
     Dates: start: 20100802, end: 20100826
  6. CYTARABINE [Concomitant]
     Indication: ACUTE LYMPHOCYTIC LEUKAEMIA
     Dosage: 40 MG, UNKNOWN/D
     Route: 037
     Dates: start: 20100809, end: 20100826
  7. AMBISOME [Suspect]
     Indication: PRODUCT USED FOR UNKNOWN INDICATION
     Dosage: 50 MG (0.5 DF), UNKNOWN/D
     Route: 042
     Dates: start: 20100813, end: 20100914
  8. VINCRISTINE [Concomitant]
     Indication: ACUTE LYMPHOCYTIC LEUKAEMIA
     Dosage: 2 MG, UID/QD
     Route: 042
     Dates: start: 20100809, end: 20100830
  9. DEPO-MEDROL [Suspect]
     Indication: PRODUCT USED FOR UNKNOWN INDICATION
     Dosage: 40 MG, UNKNOWN/D
     Route: 037
     Dates: start: 20100809, end: 20100826
  10. CORTANCYL [Suspect]
     Indication: ACUTE LYMPHOCYTIC LEUKAEMIA
     Dosage: 100 MG, UID/QD
     Route: 048
     Dates: start: 20100802, end: 20100808
  11. CORTANCYL [Suspect]
     Dosage: 110.4 MG, UID/QD
     Route: 048
     Dates: start: 20100808, end: 20100822
  12. KIDROLASE [Suspect]
     Dosage: 11000 IU, UID/QD
     Route: 042
     Dates: start: 20100828, end: 20100906
  13. EMEND [Suspect]
     Indication: PRODUCT USED FOR UNKNOWN INDICATION
     Dosage: 80 MG UID/QD
     Route: 048
     Dates: start: 20100809, end: 20100820
  14. ENDOXAN [Concomitant]
     Indication: ACUTE LYMPHOCYTIC LEUKAEMIA
     Dosage: 1380 MG, UNKNOWN/D
     Route: 065
     Dates: start: 20100809

REACTIONS (2)
  - DIABETES MELLITUS INADEQUATE CONTROL [None]
  - DIABETES MELLITUS [None]
